FAERS Safety Report 5821539-8 (Version None)
Quarter: 2008Q3

REPORT INFORMATION
  Report Type: 
  Country: None (occurrence: None)
  Receive Date: 20080724
  Receipt Date: 20080710
  Transmission Date: 20090109
  Serious: Yes (Other)
  Sender: FDA-Public Use
  Company Number: PHHY2008DE13582

PATIENT
  Age: 74 Year
  Sex: Female

DRUGS (1)
  1. ZOMETA [Suspect]
     Indication: METASTASES TO BONE
     Dosage: 4MG EVERY 4 WEEKS
     Route: 042
     Dates: start: 20060101

REACTIONS (6)
  - DENTAL TREATMENT [None]
  - IMPAIRED HEALING [None]
  - LOOSE TOOTH [None]
  - PURULENT DISCHARGE [None]
  - TOOTH ABSCESS [None]
  - TOOTH EXTRACTION [None]
